FAERS Safety Report 9836867 (Version 1)
Quarter: 2013Q4

REPORT INFORMATION
  Report Type: Spontaneous
  Country: US (occurrence: None)
  Receive Date: 20131120
  Receipt Date: 20131120
  Transmission Date: 20140711
  Serious: No
  Sender: FDA-Public Use
  Company Number: 1000048763

PATIENT
  Age: 59 Year
  Sex: Female
  Weight: 77.1 kg

DRUGS (1)
  1. VIIBRYD (VILAZODONE HYDROCHLORIDE) (10 MILLIGRAM, TABLET) [Suspect]
     Indication: DEPRESSION
     Route: 048
     Dates: start: 201308, end: 201308

REACTIONS (7)
  - Drug ineffective [None]
  - Nausea [None]
  - Vomiting [None]
  - Gait disturbance [None]
  - Malaise [None]
  - Stress [None]
  - Feeling abnormal [None]
